FAERS Safety Report 5291657-4 (Version None)
Quarter: 2007Q2

REPORT INFORMATION
  Report Type: 
  Country: None (occurrence: None)
  Receive Date: 20070410
  Receipt Date: 20070326
  Transmission Date: 20071010
  Serious: Yes (Hospitalization, Other)
  Sender: FDA-Public Use
  Company Number: GB-JNJFOC-20070306373

PATIENT
  Sex: Female
  Weight: 59 kg

DRUGS (15)
  1. REMICADE [Suspect]
     Indication: CONNECTIVE TISSUE DISORDER
     Route: 042
  2. REMICADE [Suspect]
     Indication: CROHN'S DISEASE
     Route: 042
  3. AZATHIOPRINE [Concomitant]
  4. PREDNISOLONE [Concomitant]
  5. ADALAT [Concomitant]
  6. CALCIUM [Concomitant]
  7. DOMPERIDONE [Concomitant]
  8. FYBOGEL [Concomitant]
  9. LACTULOSE [Concomitant]
  10. LOSEC [Concomitant]
  11. SULFASALAZINE [Concomitant]
  12. SENNA [Concomitant]
  13. SEVREDOL [Concomitant]
  14. ZOMIG [Concomitant]
  15. ARCOXIA [Concomitant]

REACTIONS (2)
  - CONNECTIVE TISSUE DISORDER [None]
  - CROHN'S DISEASE [None]
